FAERS Safety Report 5907704-X (Version None)
Quarter: 2008Q4

REPORT INFORMATION
  Report Type: 
  Country: None (occurrence: None)
  Receive Date: 20081003
  Receipt Date: 20070905
  Transmission Date: 20090506
  Serious: Yes (Death, Other)
  Sender: FDA-Public Use
  Company Number: CA-ROCHE-515919

PATIENT
  Age: 48 Year
  Sex: Female

DRUGS (9)
  1. ENFUVIRTIDE [Suspect]
     Indication: DRUG USE FOR UNKNOWN INDICATION
     Route: 058
  2. APTIVUS [Suspect]
     Indication: DRUG USE FOR UNKNOWN INDICATION
     Route: 048
  3. RITONAVIR [Suspect]
     Indication: DRUG USE FOR UNKNOWN INDICATION
     Route: 048
  4. TENOFOVIR [Suspect]
     Indication: DRUG USE FOR UNKNOWN INDICATION
     Route: 048
  5. 3TC [Concomitant]
     Route: 048
  6. ATARAX [Concomitant]
  7. PROCHLORPERAZINE [Concomitant]
  8. MALARONE [Concomitant]
  9. ACYCLOVIR [Concomitant]

REACTIONS (11)
  - CARDIAC ARREST [None]
  - CONFUSIONAL STATE [None]
  - CONVULSION [None]
  - DEATH [None]
  - GASTROINTESTINAL HAEMORRHAGE [None]
  - HAEMOLYTIC URAEMIC SYNDROME [None]
  - HEPATIC ENZYME INCREASED [None]
  - PANCREATIC ENZYMES INCREASED [None]
  - RENAL FAILURE ACUTE [None]
  - RESPIRATORY ARREST [None]
  - THROMBOCYTOPENIC PURPURA [None]
